FAERS Safety Report 15300724 (Version 1)
Quarter: 2018Q3

REPORT INFORMATION
  Report Type: Spontaneous
  Country: US (occurrence: US)
  Receive Date: 20180808
  Receipt Date: 20180808
  Transmission Date: 20181010
  Serious: No
  Sender: FDA-Public Use
  Company Number: None

PATIENT

DRUGS (1)
  1. VALSARTAN. [Suspect]
     Active Substance: VALSARTAN
     Indication: HYPERTENSION
     Dosage: ?          QUANTITY:90 DF DOSAGE FORM;?
     Route: 048
     Dates: start: 200611, end: 20180719

REACTIONS (2)
  - Renal cyst [None]
  - Renal cancer [None]
